FAERS Safety Report 25205642 (Version 1)
Quarter: 2025Q2

REPORT INFORMATION
  Report Type: Spontaneous
  Country: GB (occurrence: GB)
  Receive Date: 20250417
  Receipt Date: 20250417
  Transmission Date: 20250717
  Serious: Yes (Hospitalization)
  Sender: GALDERMA
  Company Number: GB-GALDERMA-GB2025005760

PATIENT

DRUGS (1)
  1. BENZOYL PEROXIDE [Suspect]
     Active Substance: BENZOYL PEROXIDE
     Indication: Product used for unknown indication
     Route: 061
     Dates: start: 20250330

REACTIONS (2)
  - Chemical burn of skin [Unknown]
  - Blister [Unknown]

NARRATIVE: CASE EVENT DATE: 20250331
